FAERS Safety Report 10692005 (Version 1)
Quarter: 2015Q1

REPORT INFORMATION
  Report Type: Spontaneous
  Country: US (occurrence: US)
  Receive Date: 20150106
  Receipt Date: 20150106
  Transmission Date: 20150720
  Serious: Yes (Other)
  Sender: FDA-Public Use
  Company Number: US-NOVOPROD-433809

PATIENT
  Sex: Female

DRUGS (1)
  1. LEVEMIR [Suspect]
     Active Substance: INSULIN DETEMIR
     Indication: PRODUCT USED FOR UNKNOWN INDICATION
     Route: 058

REACTIONS (6)
  - Peritonitis [Unknown]
  - Asthenia [Unknown]
  - Diarrhoea [Unknown]
  - Cardiac disorder [Unknown]
  - Malaise [Unknown]
  - Blood glucose fluctuation [Unknown]
